FAERS Safety Report 12882194 (Version 1)
Quarter: 2016Q4

REPORT INFORMATION
  Report Type: Spontaneous
  Country: DE (occurrence: DE)
  Receive Date: 20161025
  Receipt Date: 20161025
  Transmission Date: 20170207
  Serious: Yes (Other)
  Sender: FDA-Public Use
  Company Number: DE-BAYER-2016-194836

PATIENT
  Age: 26 Year
  Sex: Female

DRUGS (2)
  1. JAYDESS [Suspect]
     Active Substance: LEVONORGESTREL
     Indication: CONTRACEPTION
     Dosage: 14 MCG/24HR, CONT
     Route: 015
     Dates: start: 20160111, end: 20160324
  2. XYLOCAINE [Concomitant]
     Active Substance: LIDOCAINE HYDROCHLORIDE
     Indication: LOCAL ANAESTHESIA
     Dosage: UNK
     Route: 015
     Dates: start: 20160111, end: 20160111

REACTIONS (10)
  - Amenorrhoea [None]
  - Device difficult to use [None]
  - Ovarian enlargement [None]
  - Ovarian cyst [None]
  - Escherichia test positive [None]
  - Uterine perforation [None]
  - Abdominal pain lower [None]
  - Dysmenorrhoea [None]
  - Procedural pain [None]
  - Endometrial thickening [None]

NARRATIVE: CASE EVENT DATE: 2016
